FAERS Safety Report 16019867 (Version 2)
Quarter: 2019Q1

REPORT INFORMATION
  Report Type: Spontaneous
  Country: US (occurrence: US)
  Receive Date: 20190228
  Receipt Date: 20190326
  Transmission Date: 20190418
  Serious: Yes (Death, Other)
  Sender: FDA-Public Use
  Company Number: US-009507513-1902USA010189

PATIENT
  Age: 64 Year
  Sex: Male
  Weight: 107.21 kg

DRUGS (6)
  1. KEYTRUDA [Suspect]
     Active Substance: PEMBROLIZUMAB
     Indication: METASTASES TO LYMPH NODES
     Dosage: 200 MILLIGRAM, Q3W, CONTINUED UNTIL PATIENT DIED
     Route: 065
     Dates: start: 20190211
  2. CARBOPLATIN. [Concomitant]
     Active Substance: CARBOPLATIN
     Indication: METASTASES TO LYMPH NODES
  3. ALIMTA [Concomitant]
     Active Substance: PEMETREXED DISODIUM
     Indication: METASTASES TO LYMPH NODES
  4. ALIMTA [Concomitant]
     Active Substance: PEMETREXED DISODIUM
     Indication: LUNG ADENOCARCINOMA
     Dosage: CONTINUED UNTIL PATIENT DIED
  5. CARBOPLATIN. [Concomitant]
     Active Substance: CARBOPLATIN
     Indication: LUNG ADENOCARCINOMA
     Dosage: CONTINUED UNTIL PATIENT DIED
  6. KEYTRUDA [Suspect]
     Active Substance: PEMBROLIZUMAB
     Indication: LUNG ADENOCARCINOMA

REACTIONS (2)
  - Malignant neoplasm progression [Fatal]
  - Treatment noncompliance [Fatal]

NARRATIVE: CASE EVENT DATE: 201902
